FAERS Safety Report 4547404-4 (Version None)
Quarter: 2005Q1

REPORT INFORMATION
  Report Type: 
  Country: None (occurrence: None)
  Receive Date: 20050107
  Receipt Date: 20041229
  Transmission Date: 20050727
  Serious: Yes (Life-Threatening)
  Sender: FDA-Public Use
  Company Number: JP-ROCHE-390801

PATIENT
  Age: 69 Year
  Sex: Male

DRUGS (5)
  1. PANALDINE [Suspect]
     Indication: THROMBOSIS PROPHYLAXIS
     Route: 048
     Dates: start: 20041019, end: 20041211
  2. DILTIAZEM HYDROCHLORIDE [Concomitant]
     Indication: ANGINA PECTORIS
     Dosage: REPORTED AS HERBESSER
     Route: 048
  3. SIGMART [Concomitant]
     Indication: ANGINA PECTORIS
     Route: 048
  4. ASPIRIN [Concomitant]
     Indication: ANGINA PECTORIS
     Dosage: ALSO TAKEN FOR ATHEROSCLEROSIS OBLITERANS
     Route: 048
  5. FRANDOL [Concomitant]
     Indication: ANGINA PECTORIS
     Route: 046

REACTIONS (1)
  - HYPERKALAEMIA [None]
